FAERS Safety Report 8016037-X (Version None)
Quarter: 2011Q4

REPORT INFORMATION
  Report Type: 
  Country: None (occurrence: None)
  Receive Date: 20111230
  Receipt Date: 20111230
  Transmission Date: 20120403
  Serious: Yes (Hospitalization, Other)
  Sender: FDA-Public Use
  Company Number: None

PATIENT
  Age: 31 Year
  Sex: Female
  Weight: 63.502 kg

DRUGS (1)
  1. SYNTHROID [Suspect]
     Indication: HYPOTHYROIDISM
     Dosage: 100 MCG
     Route: 048

REACTIONS (12)
  - CONFUSIONAL STATE [None]
  - IRRITABILITY [None]
  - HYPOGLYCAEMIA [None]
  - PALPITATIONS [None]
  - NAUSEA [None]
  - MUSCULAR WEAKNESS [None]
  - DYSPHEMIA [None]
  - DIZZINESS [None]
  - TREMOR [None]
  - HEADACHE [None]
  - NEUROPATHY PERIPHERAL [None]
  - DYSPNOEA [None]
